FAERS Safety Report 9667996 (Version 2)
Quarter: 2013Q4

REPORT INFORMATION
  Report Type: Spontaneous
  Country: JP (occurrence: JP)
  Receive Date: 20131104
  Receipt Date: 20131217
  Transmission Date: 20140711
  Serious: Yes (Hospitalization)
  Sender: FDA-Public Use
  Company Number: JP-GLAXOSMITHKLINE-B0927605A

PATIENT
  Age: 51 Year
  Sex: Female

DRUGS (25)
  1. LAMICTAL [Suspect]
     Indication: DEPRESSION
     Dosage: 6.25MG ALTERNATE DAYS
     Route: 048
     Dates: start: 20100716, end: 20100729
  2. LAMICTAL [Suspect]
     Indication: DEPRESSION
     Dosage: 12.5MG ALTERNATE DAYS
     Route: 048
     Dates: start: 20100730, end: 20100812
  3. LAMICTAL [Suspect]
     Indication: DEPRESSION
     Dosage: 12.5MG PER DAY
     Route: 048
     Dates: start: 20100813, end: 20100826
  4. LAMICTAL [Suspect]
     Indication: DEPRESSION
     Dosage: 18.75MG PER DAY
     Route: 048
     Dates: start: 20100827, end: 20100902
  5. LAMICTAL [Suspect]
     Indication: DEPRESSION
     Dosage: 25MG PER DAY
     Route: 048
     Dates: start: 20100903, end: 20100909
  6. LAMICTAL [Suspect]
     Indication: DEPRESSION
     Dosage: 37.5MG TWICE PER DAY
     Route: 048
     Dates: start: 20100910, end: 20100923
  7. LAMICTAL [Suspect]
     Indication: DEPRESSION
     Dosage: 25MG TWICE PER DAY
     Route: 048
     Dates: start: 20100924, end: 20110113
  8. LAMICTAL [Suspect]
     Indication: DEPRESSION
     Dosage: 25MG THREE TIMES PER DAY
     Route: 048
     Dates: start: 20110114, end: 20110127
  9. LAMICTAL [Suspect]
     Indication: DEPRESSION
     Route: 048
     Dates: start: 20110128, end: 20110310
  10. LAMICTAL [Suspect]
     Indication: DEPRESSION
     Dosage: 75MG PER DAY
     Route: 048
     Dates: start: 20110311, end: 20110317
  11. LAMICTAL [Suspect]
     Indication: DEPRESSION
     Dosage: 100MG PER DAY
     Route: 048
     Dates: start: 20110318, end: 20110329
  12. LAMICTAL [Suspect]
     Indication: DEPRESSION
     Dosage: 50MG TWICE PER DAY
     Route: 048
     Dates: start: 20110330, end: 20110516
  13. LAMICTAL [Suspect]
     Indication: DEPRESSION
     Route: 048
     Dates: start: 20110517, end: 20110526
  14. LAMICTAL [Suspect]
     Indication: DEPRESSION
     Dosage: 50MG THREE TIMES PER DAY
     Route: 048
     Dates: start: 20110527, end: 20110609
  15. LAMICTAL [Suspect]
     Indication: DEPRESSION
     Route: 048
     Dates: start: 20110610, end: 20110627
  16. LAMICTAL [Suspect]
     Indication: DEPRESSION
     Dosage: 75MG THREE TIMES PER DAY
     Route: 048
     Dates: start: 20110628, end: 20110721
  17. LAMICTAL [Suspect]
     Indication: DEPRESSION
     Dosage: 100MG THREE TIMES PER DAY
     Route: 048
     Dates: start: 20110722, end: 20110804
  18. LAMICTAL [Suspect]
     Indication: DEPRESSION
     Dosage: 125MG THREE TIMES PER DAY
     Route: 048
     Dates: start: 20110805, end: 20110811
  19. LAMICTAL [Suspect]
     Indication: DEPRESSION
     Dosage: 100MG FOUR TIMES PER DAY
     Route: 048
     Dates: start: 20110812, end: 20111117
  20. LAMICTAL [Suspect]
     Indication: DEPRESSION
     Dosage: 25MG EIGHT TIMES PER DAY
     Route: 048
     Dates: start: 20111118, end: 20120314
  21. ANAFRANIL [Concomitant]
     Indication: DEPRESSION
     Dosage: 25MG EIGHT TIMES PER DAY
     Route: 048
  22. VEGETAMIN-B [Concomitant]
     Indication: INSOMNIA
     Dosage: 1IUAX PER DAY
     Route: 048
  23. SEDIEL [Concomitant]
     Indication: MENTAL DISORDER
     Dosage: 20MG THREE TIMES PER DAY
     Route: 048
  24. TRYPTANOL [Concomitant]
     Indication: MENTAL DISORDER
     Dosage: 10MG THREE TIMES PER DAY
     Route: 048
  25. CATAPRES [Concomitant]
     Indication: PALPITATIONS
     Dosage: 75MG TWICE PER DAY
     Route: 048

REACTIONS (9)
  - Stevens-Johnson syndrome [Recovered/Resolved]
  - Toxic epidermal necrolysis [Recovered/Resolved]
  - Oculomucocutaneous syndrome [Recovered/Resolved]
  - Toxic epidermal necrolysis [Recovered/Resolved]
  - Drug eruption [Unknown]
  - Oral mucosa erosion [Unknown]
  - Oral pain [Unknown]
  - Aphthous stomatitis [Unknown]
  - Hypophagia [Recovering/Resolving]
